FAERS Safety Report 25028452 (Version 1)
Quarter: 2025Q1

REPORT INFORMATION
  Report Type: Report from Study
  Country: EG (occurrence: EG)
  Receive Date: 20250302
  Receipt Date: 20250302
  Transmission Date: 20250409
  Serious: Yes (Life-Threatening, Other)
  Sender: ROCHE
  Company Number: EG-ROCHE-10000217853

PATIENT
  Age: 50 Year
  Sex: Female
  Weight: 40 kg

DRUGS (6)
  1. TECENTRIQ [Suspect]
     Active Substance: ATEZOLIZUMAB
     Indication: Lung neoplasm malignant
     Route: 042
     Dates: start: 20240309, end: 20241220
  2. GEMZAR [Concomitant]
     Active Substance: GEMCITABINE HYDROCHLORIDE
     Indication: Metastases to liver
     Route: 042
     Dates: start: 20250108
  3. GEMZAR [Concomitant]
     Active Substance: GEMCITABINE HYDROCHLORIDE
     Indication: Lung neoplasm malignant
  4. AVASTIN [Concomitant]
     Active Substance: BEVACIZUMAB
     Indication: Metastases to liver
     Route: 042
  5. AVASTIN [Concomitant]
     Active Substance: BEVACIZUMAB
     Indication: Lung neoplasm malignant
  6. CARBOPLATIN [Concomitant]
     Active Substance: CARBOPLATIN
     Route: 042
     Dates: start: 20250108

REACTIONS (3)
  - Disease progression [Unknown]
  - Cerebral disorder [Unknown]
  - Metastases to liver [Unknown]

NARRATIVE: CASE EVENT DATE: 20241208
